FAERS Safety Report 8775200 (Version 2)
Quarter: 2012Q4

REPORT INFORMATION
  Report Type: 
  Country: US (occurrence: US)
  Receive Date: 20120910
  Receipt Date: 20120910
  Transmission Date: 20130627
  Serious: Yes (Hospitalization)
  Sender: FDA-Public Use
  Company Number: US-BAYER-2012-077277

PATIENT
  Age: 91 Year
  Sex: Female
  Weight: 65.32 kg

DRUGS (14)
  1. RIVAROXABAN [Suspect]
     Indication: ATRIAL FIBRILLATION
     Dosage: 20 mg, QD
     Route: 048
     Dates: start: 20120119, end: 20120326
  2. RIVAROXABAN [Interacting]
     Indication: CEREBROVASCULAR ACCIDENT PROPHYLAXIS
     Dosage: 15 mg, QD
     Route: 048
     Dates: start: 20120326, end: 20120815
  3. RIVAROXABAN [Interacting]
     Indication: ATRIAL FIBRILLATION
     Dosage: UNK
     Dates: start: 20120801
  4. ACETYLSALICYLIC ACID (} 100 MG) [Interacting]
     Indication: CORONARY ARTERY DISEASE
  5. LIPITOR [Concomitant]
     Indication: CARDIOVASCULAR DISORDER
     Dosage: 20 mg, QD
     Route: 048
     Dates: start: 2010, end: 20120402
  6. ATENOLOL [Concomitant]
     Indication: HEART RATE INCREASED
     Dosage: 1.5 mg, BID
     Route: 048
  7. ATENOLOL [Concomitant]
     Indication: HEART RATE INCREASED
     Route: 048
     Dates: start: 20120402
  8. DIURETICS [Concomitant]
     Indication: DIURETIC THERAPY
     Dosage: 20 mg, UNK
     Route: 048
     Dates: end: 2012
  9. LASIX [Concomitant]
     Indication: JOINT SWELLING
     Dosage: 20 mg, UNK
     Route: 048
     Dates: end: 2012
  10. LASIX [Concomitant]
     Indication: DIURETIC THERAPY
     Dosage: 20 mg, QD
     Route: 048
     Dates: start: 20120402, end: 2012
  11. LASIX [Concomitant]
     Indication: DIURETIC THERAPY
  12. LASIX [Concomitant]
     Indication: JOINT SWELLING
  13. LASIX [Concomitant]
     Indication: DIURETIC THERAPY
  14. PROTONIX [Concomitant]
     Dosage: 40 mg, UNK
     Route: 048
     Dates: end: 20120724

REACTIONS (8)
  - Haemorrhoids [Not Recovered/Not Resolved]
  - Gastric ulcer [Recovering/Resolving]
  - Weight decreased [Not Recovered/Not Resolved]
  - Faeces discoloured [Recovered/Resolved]
  - Ecchymosis [Recovered/Resolved]
  - Expired drug administered [Unknown]
  - Oesophagitis [Recovering/Resolving]
  - Diverticulum [Recovering/Resolving]
